FAERS Safety Report 19835852 (Version 7)
Quarter: 2022Q2

REPORT INFORMATION
  Report Type: Spontaneous
  Country: JP (occurrence: JP)
  Receive Date: 20210916
  Receipt Date: 20220506
  Transmission Date: 20220721
  Serious: Yes (Life-Threatening, Hospitalization, Other)
  Sender: FDA-Public Use
  Company Number: JP-ASTELLAS-2021JP014658

PATIENT
  Age: 5 Year
  Sex: Female
  Weight: 22 kg

DRUGS (24)
  1. PROGRAF [Suspect]
     Active Substance: TACROLIMUS
     Indication: Graft versus host disease
     Dosage: 0.05 MG, ONCE DAILY
     Route: 041
     Dates: start: 20210716, end: 20210718
  2. PROGRAF [Suspect]
     Active Substance: TACROLIMUS
     Dosage: 0.025 MG, ONCE DAILY
     Route: 041
     Dates: start: 20210719, end: 20210728
  3. PROGRAF [Suspect]
     Active Substance: TACROLIMUS
     Dosage: 0.05 MG, ONCE DAILY
     Route: 041
     Dates: start: 20210729, end: 20210805
  4. PROGRAF [Suspect]
     Active Substance: TACROLIMUS
     Dosage: 0.075 MG, ONCE DAILY
     Route: 041
     Dates: start: 20210806, end: 20210817
  5. PROGRAF [Suspect]
     Active Substance: TACROLIMUS
     Indication: Graft versus host disease
     Dosage: 0.05 MG, TWICE DAILY
     Route: 048
     Dates: start: 20210818
  6. BLINCYTO [Suspect]
     Active Substance: BLINATUMOMAB
     Indication: Acute lymphocytic leukaemia
     Route: 041
     Dates: start: 20210716, end: 20210722
  7. BLINCYTO [Suspect]
     Active Substance: BLINATUMOMAB
     Indication: Leukaemia recurrent
     Route: 041
     Dates: start: 20210723, end: 20210812
  8. BLINCYTO [Suspect]
     Active Substance: BLINATUMOMAB
     Route: 041
     Dates: start: 20210827, end: 20210923
  9. BLINCYTO [Suspect]
     Active Substance: BLINATUMOMAB
     Route: 041
     Dates: start: 20211008, end: 20211104
  10. BLINCYTO [Suspect]
     Active Substance: BLINATUMOMAB
     Route: 041
     Dates: start: 20211119, end: 20211209
  11. BORTEZOMIB [Concomitant]
     Active Substance: BORTEZOMIB
     Indication: Product used for unknown indication
     Dosage: UNK UNK, UNKNOWN FREQ.
     Route: 065
  12. TEMCELL [Concomitant]
     Indication: Product used for unknown indication
     Dosage: UNK UNK, UNKNOWN FREQ.
     Route: 065
  13. DEXAMETHASONE SODIUM PHOSPHATE [Concomitant]
     Active Substance: DEXAMETHASONE SODIUM PHOSPHATE
     Indication: Prophylaxis
     Route: 041
     Dates: start: 20210716, end: 20210716
  14. PREDONINE [Concomitant]
     Active Substance: PREDNISOLONE
     Indication: Graft versus host disease
     Dosage: 14 MG/DAY, THRICE DAILY
     Route: 042
     Dates: start: 20210716, end: 20210719
  15. PREDONINE [Concomitant]
     Active Substance: PREDNISOLONE
     Dosage: 11 MG/DAY, THRICE DAILY
     Route: 042
     Dates: start: 20210720, end: 20210726
  16. PREDONINE [Concomitant]
     Active Substance: PREDNISOLONE
     Route: 042
     Dates: start: 20210727, end: 20210731
  17. PREDONINE [Concomitant]
     Active Substance: PREDNISOLONE
     Dosage: 16 MG/DAY, THRICE DAILY
     Route: 042
     Dates: start: 20210801, end: 20210817
  18. PREDONINE [Concomitant]
     Active Substance: PREDNISOLONE
     Indication: Graft versus host disease
     Route: 048
     Dates: start: 20210818
  19. ACETAMINOPHEN [Concomitant]
     Active Substance: ACETAMINOPHEN
     Indication: Pyrexia
     Route: 041
     Dates: start: 20210716, end: 20210718
  20. ACETAMINOPHEN [Concomitant]
     Active Substance: ACETAMINOPHEN
     Route: 041
     Dates: start: 20210723, end: 20210723
  21. CELLCEPT [Concomitant]
     Active Substance: MYCOPHENOLATE MOFETIL
     Indication: Graft versus host disease
     Route: 048
     Dates: start: 20210818, end: 20210826
  22. CEFEPIME HYDROCHLORIDE [Concomitant]
     Active Substance: CEFEPIME HYDROCHLORIDE
     Indication: Pyrexia
     Dosage: UNK UNK, UNKNOWN FREQ.
     Route: 065
     Dates: start: 20210902
  23. CILASTATIN SODIUM\IMIPENEM [Concomitant]
     Active Substance: CILASTATIN SODIUM\IMIPENEM
     Indication: Device related infection
     Dosage: 1.8 G/DAY, 4 TIMES DAILY
     Route: 041
     Dates: start: 20210910, end: 20210924
  24. AZITHROMYCIN DIHYDRATE [Concomitant]
     Active Substance: AZITHROMYCIN DIHYDRATE
     Indication: Device related infection
     Route: 041
     Dates: start: 20210910, end: 20210924

REACTIONS (13)
  - Graft versus host disease in skin [Recovered/Resolved]
  - Central nervous system leukaemia [Recovered/Resolved]
  - Leukaemic infiltration gingiva [Not Recovered/Not Resolved]
  - Gingival pain [Recovering/Resolving]
  - Pyrexia [Recovered/Resolved]
  - Vascular device infection [Recovered/Resolved]
  - Device related infection [Recovered/Resolved]
  - Neutropenia [Recovered/Resolved]
  - Pyrexia [Recovered/Resolved]
  - Pyrexia [Recovered/Resolved]
  - Pyrexia [Recovered/Resolved]
  - Wrong technique in product usage process [Unknown]
  - Off label use [Unknown]

NARRATIVE: CASE EVENT DATE: 20210716
